FAERS Safety Report 17477397 (Version 1)
Quarter: 2020Q1

REPORT INFORMATION
  Report Type: Report from Study
  Country: US (occurrence: US)
  Receive Date: 20200228
  Receipt Date: 20200228
  Transmission Date: 20200409
  Serious: Yes (Hospitalization, Other)
  Sender: FDA-Public Use
  Company Number: US-JNJFOC-20191044410

PATIENT
  Sex: Male

DRUGS (1)
  1. STELARA [Suspect]
     Active Substance: USTEKINUMAB
     Indication: CROHN^S DISEASE
     Route: 058

REACTIONS (10)
  - Abdominal distension [Unknown]
  - Dry mouth [Unknown]
  - Pneumothorax [Unknown]
  - Fistula [Unknown]
  - Balance disorder [Unknown]
  - Diarrhoea [Unknown]
  - Rash [Unknown]
  - Fall [Unknown]
  - Inappropriate schedule of product administration [Unknown]
  - Abdominal discomfort [Unknown]

NARRATIVE: CASE EVENT DATE: 201911
